FAERS Safety Report 15764905 (Version 1)
Quarter: 2018Q4

REPORT INFORMATION
  Report Type: Report from Study
  Country: EG (occurrence: EG)
  Receive Date: 20181227
  Receipt Date: 20181227
  Transmission Date: 20190205
  Serious: Yes (Other)
  Sender: FDA-Public Use
  Company Number: EG-SA-2018SA200553

PATIENT
  Age: 65 Year
  Sex: Male

DRUGS (3)
  1. B12 VITAMIN STAR [Concomitant]
  2. INSULIN GLULISINE [Suspect]
     Active Substance: INSULIN GLULISINE
     Indication: TYPE 2 DIABETES MELLITUS
     Dosage: 16, 16, 16 IU, TID
     Route: 058
     Dates: start: 201611
  3. INSULIN GLARGINE [Suspect]
     Active Substance: INSULIN GLARGINE
     Indication: TYPE 2 DIABETES MELLITUS
     Dosage: 20 IU, QD
     Route: 058
     Dates: start: 201611

REACTIONS (2)
  - Product dose omission [Unknown]
  - Blindness [Unknown]

NARRATIVE: CASE EVENT DATE: 20180714
